FAERS Safety Report 7228189-X (Version None)
Quarter: 2011Q1

REPORT INFORMATION
  Report Type: 
  Country: None (occurrence: None)
  Receive Date: 20110114
  Receipt Date: 20110105
  Transmission Date: 20110831
  Serious: Yes (Hospitalization, Other)
  Sender: FDA-Public Use
  Company Number: US-ASTRAZENECA-2011SE00291

PATIENT
  Age: 525 Month
  Sex: Male
  Weight: 54 kg

DRUGS (7)
  1. LYRICA [Concomitant]
     Indication: ARTHRALGIA
  2. LYRICA [Concomitant]
     Indication: MYALGIA
  3. SEROQUEL [Suspect]
     Indication: BIPOLAR DISORDER
     Route: 048
  4. SEROQUEL [Suspect]
     Indication: SLEEP DISORDER
     Route: 048
  5. PROTONIX [Concomitant]
     Indication: OESOPHAGEAL DISORDER
  6. EFFEXOR [Concomitant]
     Indication: ANXIETY
  7. EFFEXOR [Concomitant]
     Indication: DEPRESSION

REACTIONS (5)
  - CONVULSION [None]
  - GRAND MAL CONVULSION [None]
  - SOMNOLENCE [None]
  - ALCOHOL WITHDRAWAL SYNDROME [None]
  - PANIC ATTACK [None]
